FAERS Safety Report 23549663 (Version 1)
Quarter: 2024Q1

REPORT INFORMATION
  Report Type: Spontaneous
  Country: FR (occurrence: None)
  Receive Date: 20240221
  Receipt Date: 20240221
  Transmission Date: 20240410
  Serious: Yes (Life-Threatening, Other)
  Sender: FDA-Public Use
  Company Number: 2024A042895

PATIENT
  Age: 30 Day
  Sex: Female

DRUGS (1)
  1. BEYFORTUS [Suspect]
     Active Substance: NIRSEVIMAB-ALIP
     Dosage: UNK
     Dates: start: 20231122

REACTIONS (3)
  - Acute respiratory distress syndrome [Recovered/Resolved]
  - Respiratory syncytial virus infection [Recovered/Resolved]
  - Drug ineffective [Unknown]
